FAERS Safety Report 4939145-6 (Version None)
Quarter: 2006Q1

REPORT INFORMATION
  Report Type: 
  Country: None (occurrence: None)
  Receive Date: 20060306
  Receipt Date: 20060223
  Transmission Date: 20060701
  Serious: Yes (Hospitalization)
  Sender: FDA-Public Use
  Company Number: 2006028129

PATIENT
  Age: 45 Year
  Sex: Female
  Weight: 75 kg

DRUGS (2)
  1. MEDROL [Suspect]
     Indication: ILL-DEFINED DISORDER
     Dosage: UNKNOWN, ORAL
     Route: 048
     Dates: start: 20060130, end: 20060201
  2. TAXOTERE [Suspect]
     Indication: BREAST CANCER
     Dosage: 180 MG (1 D),  INTRAVENOUS
     Route: 042
     Dates: start: 20060131, end: 20060131

REACTIONS (6)
  - ANXIETY [None]
  - ERYTHEMA [None]
  - EXTRAVASATION [None]
  - FEELING ABNORMAL [None]
  - OEDEMA [None]
  - PAIN [None]
